FAERS Safety Report 25638511 (Version 1)
Quarter: 2025Q3

REPORT INFORMATION
  Report Type: Spontaneous
  Country: EU (occurrence: EU)
  Receive Date: 20250804
  Receipt Date: 20250804
  Transmission Date: 20251020
  Serious: Yes (Other)
  Sender: MYLAN
  Company Number: None

PATIENT
  Age: 29 Year
  Sex: Female

DRUGS (12)
  1. ACETAMINOPHEN [Suspect]
     Active Substance: ACETAMINOPHEN
     Indication: Endometriosis
     Dosage: 3 GRAM, QD
     Dates: start: 20250611, end: 20250621
  2. ACETAMINOPHEN [Suspect]
     Active Substance: ACETAMINOPHEN
     Dosage: 3 GRAM, QD
     Route: 048
     Dates: start: 20250611, end: 20250621
  3. ACETAMINOPHEN [Suspect]
     Active Substance: ACETAMINOPHEN
     Dosage: 3 GRAM, QD
     Route: 048
     Dates: start: 20250611, end: 20250621
  4. ACETAMINOPHEN [Suspect]
     Active Substance: ACETAMINOPHEN
     Dosage: 3 GRAM, QD
     Dates: start: 20250611, end: 20250621
  5. ETHINYL ESTRADIOL\LEVONORGESTREL [Suspect]
     Active Substance: ETHINYL ESTRADIOL\LEVONORGESTREL
     Indication: Contraception
     Dosage: 1 DOSAGE FORM, QD
     Dates: start: 20250526, end: 20250621
  6. ETHINYL ESTRADIOL\LEVONORGESTREL [Suspect]
     Active Substance: ETHINYL ESTRADIOL\LEVONORGESTREL
     Dosage: 1 DOSAGE FORM, QD
     Route: 048
     Dates: start: 20250526, end: 20250621
  7. ETHINYL ESTRADIOL\LEVONORGESTREL [Suspect]
     Active Substance: ETHINYL ESTRADIOL\LEVONORGESTREL
     Dosage: 1 DOSAGE FORM, QD
     Route: 048
     Dates: start: 20250526, end: 20250621
  8. ETHINYL ESTRADIOL\LEVONORGESTREL [Suspect]
     Active Substance: ETHINYL ESTRADIOL\LEVONORGESTREL
     Dosage: 1 DOSAGE FORM, QD
     Dates: start: 20250526, end: 20250621
  9. FLURBIPROFEN [Suspect]
     Active Substance: FLURBIPROFEN
     Indication: Endometriosis
     Dosage: 3 DOSAGE FORM, QD
     Dates: start: 20250611, end: 20250621
  10. FLURBIPROFEN [Suspect]
     Active Substance: FLURBIPROFEN
     Dosage: 3 DOSAGE FORM, QD
     Route: 048
     Dates: start: 20250611, end: 20250621
  11. FLURBIPROFEN [Suspect]
     Active Substance: FLURBIPROFEN
     Dosage: 3 DOSAGE FORM, QD
     Route: 048
     Dates: start: 20250611, end: 20250621
  12. FLURBIPROFEN [Suspect]
     Active Substance: FLURBIPROFEN
     Dosage: 3 DOSAGE FORM, QD
     Dates: start: 20250611, end: 20250621

REACTIONS (1)
  - Hepatic cytolysis [Recovering/Resolving]

NARRATIVE: CASE EVENT DATE: 20250621
